FAERS Safety Report 25459176 (Version 1)
Quarter: 2025Q2

REPORT INFORMATION
  Report Type: Report from Study
  Country: US (occurrence: US)
  Receive Date: 20250620
  Receipt Date: 20250620
  Transmission Date: 20250716
  Serious: Yes (Hospitalization)
  Sender: ABBVIE
  Company Number: US-ABBVIE-6331561

PATIENT
  Age: 41 Year
  Sex: Male

DRUGS (1)
  1. SKYRIZI [Suspect]
     Active Substance: RISANKIZUMAB-RZAA
     Indication: Crohn^s disease
     Route: 058
     Dates: start: 20250128

REACTIONS (5)
  - Bronchitis [Unknown]
  - Upper respiratory tract infection [Recovered/Resolved]
  - Influenza [Unknown]
  - Pharyngitis streptococcal [Unknown]
  - Epiglottitis [Unknown]

NARRATIVE: CASE EVENT DATE: 20250526
